FAERS Safety Report 6887781-2 (Version None)
Quarter: 2010Q3

REPORT INFORMATION
  Report Type: 
  Country: None (occurrence: None)
  Receive Date: 20100730
  Receipt Date: 20100720
  Transmission Date: 20110219
  Serious: Yes (Hospitalization)
  Sender: FDA-Public Use
  Company Number: US-PFIZER INC-2009243585

PATIENT
  Age: 22 Month
  Sex: Female

DRUGS (1)
  1. ZIPRASIDONE HCL [Suspect]
     Route: 048

REACTIONS (4)
  - ACCIDENTAL EXPOSURE [None]
  - DROOLING [None]
  - HYPOTONIA [None]
  - SOMNOLENCE [None]
